FAERS Safety Report 7304414-1 (Version None)
Quarter: 2011Q1

REPORT INFORMATION
  Report Type: 
  Country: None (occurrence: None)
  Receive Date: 20110221
  Receipt Date: 20110211
  Transmission Date: 20110831
  Serious: Yes (Hospitalization)
  Sender: FDA-Public Use
  Company Number: US-ASTRAZENECA-2011SE08311

PATIENT
  Age: 34 Year
  Sex: Female

DRUGS (8)
  1. PAXIL [Concomitant]
  2. PROPRANOLOL [Concomitant]
  3. SEROQUEL [Suspect]
     Indication: BIPOLAR DISORDER
     Route: 048
  4. XANAX [Concomitant]
  5. DEPAKOTE [Concomitant]
  6. SEROQUEL [Suspect]
     Indication: POST-TRAUMATIC STRESS DISORDER
     Route: 048
  7. SEROQUEL [Suspect]
     Route: 048
     Dates: start: 20100701
  8. SEROQUEL [Suspect]
     Route: 048
     Dates: start: 20100701

REACTIONS (1)
  - ENDOMETRIOSIS [None]
